FAERS Safety Report 9172071 (Version 2)
Quarter: 2013Q2

REPORT INFORMATION
  Report Type: Spontaneous
  Country: US (occurrence: US)
  Receive Date: 20130319
  Receipt Date: 20130408
  Transmission Date: 20140414
  Serious: Yes (Hospitalization)
  Sender: FDA-Public Use
  Company Number: US-PFIZER INC-2013090102

PATIENT
  Age: 38 Year
  Sex: Female
  Weight: 93.42 kg

DRUGS (5)
  1. LYRICA [Suspect]
     Indication: TRIGEMINAL NEURALGIA
     Dosage: 300 MG, 2X/DAY
     Dates: start: 2009, end: 201302
  2. LYRICA [Suspect]
     Indication: PARAESTHESIA
  3. LYRICA [Suspect]
     Indication: PAIN
  4. SUBUTEX [Suspect]
     Indication: TRIGEMINAL NEURALGIA
     Dosage: 8 MG, 3X/DAY
  5. CYMBALTA [Suspect]
     Indication: DEPRESSION
     Dosage: 50 MG, 2X/DAY

REACTIONS (6)
  - Fall [Unknown]
  - Limb injury [Unknown]
  - Arthropathy [Unknown]
  - Emotional disorder [Unknown]
  - Crying [Unknown]
  - Pain [Not Recovered/Not Resolved]
